FAERS Safety Report 4697083-0 (Version None)
Quarter: 2005Q2

REPORT INFORMATION
  Report Type: 
  Country: None (occurrence: None)
  Receive Date: 20050127
  Receipt Date: 20050127
  Transmission Date: 20051028
  Serious: No
  Sender: FDA-Public Use
  Company Number: None

PATIENT
  Sex: Male
  Weight: 90.7194 kg

DRUGS (1)
  1. GENERIC PERCOCET 5/325 [Suspect]
     Dosage: UP TO 6/DAY PRN

REACTIONS (1)
  - DRUG INEFFECTIVE [None]
